FAERS Safety Report 7022181-6 (Version None)
Quarter: 2010Q3

REPORT INFORMATION
  Report Type: 
  Country: None (occurrence: None)
  Receive Date: 20100930
  Receipt Date: 20100928
  Transmission Date: 20110219
  Serious: Yes (Death)
  Sender: FDA-Public Use
  Company Number: PHHY2009BR32038

PATIENT
  Sex: Female
  Weight: 40 kg

DRUGS (5)
  1. EXELON [Suspect]
     Indication: DEMENTIA ALZHEIMER'S TYPE
     Dosage: 9MG/5CM2, ONCE A DAY
     Route: 062
  2. SUPLAN [Concomitant]
     Indication: SUPPLEMENTATION THERAPY
     Dosage: 5 ML
     Route: 048
  3. EFORTIL [Concomitant]
     Indication: HYPERTENSION
     Dosage: 15 DROPS PER DAY
     Route: 048
  4. INSURE [Concomitant]
     Indication: SUPPLEMENTATION THERAPY
     Dosage: 52.3 MG, BID
     Route: 048
  5. SONRISAL [Concomitant]
     Dosage: TWO SYRINGES OF 5 ML
     Route: 048

REACTIONS (5)
  - BLOOD PRESSURE INCREASED [None]
  - DEATH [None]
  - ERUCTATION [None]
  - RETCHING [None]
  - VOMITING [None]
